FAERS Safety Report 7510229-1 (Version None)
Quarter: 2011Q2

REPORT INFORMATION
  Report Type: 
  Country: None (occurrence: None)
  Receive Date: 20110527
  Receipt Date: 20110517
  Transmission Date: 20111010
  Serious: Yes (Other)
  Sender: FDA-Public Use
  Company Number: PHHY2011IT43302

PATIENT
  Age: 21 Year
  Sex: Female

DRUGS (2)
  1. CLOZAPINE [Suspect]
     Dosage: 50 MG, QD
  2. CLOZAPINE [Suspect]

REACTIONS (1)
  - METABOLIC SYNDROME [None]
